FAERS Safety Report 6382248-2 (Version None)
Quarter: 2009Q3

REPORT INFORMATION
  Report Type: 
  Country: None (occurrence: None)
  Receive Date: 20090925
  Receipt Date: 20090910
  Transmission Date: 20100115
  Serious: Yes (Hospitalization)
  Sender: FDA-Public Use
  Company Number: 2009BM000221

PATIENT
  Age: 20 Year
  Sex: Female
  Weight: 70.3075 kg

DRUGS (2)
  1. AGLAZYME           (GALSULFASE) [Suspect]
     Indication: MUCOPOLYSACCHARIDOSIS VI
     Dosage: 1 MG/KG; QW; IVDRP
     Route: 041
     Dates: start: 20080327
  2. COUMADIN [Concomitant]

REACTIONS (6)
  - HAEMOPTYSIS [None]
  - PNEUMONIA [None]
  - POST PROCEDURAL HAEMORRHAGE [None]
  - RENAL DISORDER [None]
  - STAPHYLOCOCCAL INFECTION [None]
  - TRACHEOSTOMY INFECTION [None]
